FAERS Safety Report 19380022 (Version 1)
Quarter: 2021Q2

REPORT INFORMATION
  Report Type: Spontaneous
  Country: CA (occurrence: CA)
  Receive Date: 20210607
  Receipt Date: 20210607
  Transmission Date: 20210717
  Serious: Yes (Hospitalization)
  Sender: FDA-Public Use
  Company Number: CA-ROCHE-2839765

PATIENT
  Sex: Female

DRUGS (11)
  1. ESCITALOPRAM [Concomitant]
     Active Substance: ESCITALOPRAM OXALATE
  2. MELATONIN [Concomitant]
     Active Substance: MELATONIN
  3. PROCHLORPERAZINE. [Concomitant]
     Active Substance: PROCHLORPERAZINE
  4. VITAMIN D3 [Concomitant]
     Active Substance: CHOLECALCIFEROL
  5. QUETIAPINE XR [Concomitant]
     Active Substance: QUETIAPINE
  6. VITAMINA B 12 [Concomitant]
     Active Substance: CYANOCOBALAMIN
  7. CAPECITABINE. [Suspect]
     Active Substance: CAPECITABINE
     Indication: PRODUCT USED FOR UNKNOWN INDICATION
     Route: 065
  8. AMOXI?CLAV [Concomitant]
     Active Substance: AMOXICILLIN\CLAVULANATE POTASSIUM
  9. COD LIVER OIL [Concomitant]
     Active Substance: COD LIVER OIL
  10. FLUCONAZOLE. [Concomitant]
     Active Substance: FLUCONAZOLE
  11. OMEGA?3 ACIDS [Concomitant]
     Active Substance: OMEGA-3 FATTY ACIDS

REACTIONS (15)
  - Dysphagia [Unknown]
  - Vomiting [Unknown]
  - Yellow skin [Unknown]
  - Rash macular [Unknown]
  - Neutropenia [Unknown]
  - Oral mucosal blistering [Unknown]
  - Productive cough [Unknown]
  - Chest pain [Unknown]
  - Lethargy [Unknown]
  - Oropharyngeal pain [Unknown]
  - Tachycardia [Unknown]
  - Somnolence [Unknown]
  - Dizziness postural [Unknown]
  - Ear pain [Unknown]
  - Nausea [Unknown]
